FAERS Safety Report 7650310-X (Version None)
Quarter: 2011Q3

REPORT INFORMATION
  Report Type: 
  Country: None (occurrence: None)
  Receive Date: 20110802
  Receipt Date: 20100715
  Transmission Date: 20111222
  Serious: Yes (Death, Other)
  Sender: FDA-Public Use
  Company Number: US-AMGEN-QUU424571

PATIENT
  Age: 65 Year
  Sex: Male

DRUGS (1)
  1. NPLATE [Suspect]
     Indication: IDIOPATHIC THROMBOCYTOPENIC PURPURA
     Dosage: 4.04 A?G/KG, UNK
     Dates: start: 20090731, end: 20091219

REACTIONS (2)
  - B-CELL LYMPHOMA [None]
  - DRUG INEFFECTIVE [None]
